FAERS Safety Report 10873478 (Version 2)
Quarter: 2015Q3

REPORT INFORMATION
  Report Type: Spontaneous
  Country: GB (occurrence: GB)
  Receive Date: 20150227
  Receipt Date: 20150911
  Transmission Date: 20151125
  Serious: Yes (Other)
  Sender: FDA-Public Use
  Company Number: GB-ROCHE-1544645

PATIENT
  Age: 49 Year
  Sex: Female

DRUGS (1)
  1. HERCEPTIN [Suspect]
     Active Substance: TRASTUZUMAB
     Indication: PRODUCT USED FOR UNKNOWN INDICATION
     Route: 058

REACTIONS (7)
  - Epistaxis [Unknown]
  - Depressed mood [Unknown]
  - Crying [Unknown]
  - Nasal discomfort [Unknown]
  - Anxiety [Unknown]
  - Scab [Unknown]
  - Fatigue [Unknown]

NARRATIVE: CASE EVENT DATE: 20150223
